FAERS Safety Report 8504977-4 (Version None)
Quarter: 2012Q3

REPORT INFORMATION
  Report Type: 
  Country: None (occurrence: None)
  Receive Date: 20120702
  Receipt Date: 20110221
  Transmission Date: 20120928
  Serious: Yes (Other)
  Sender: FDA-Public Use
  Company Number: 2011AP000300

PATIENT
  Age: 58 Year
  Sex: Male

DRUGS (9)
  1. PREDNISONE TAB [Suspect]
     Indication: SYSTEMIC LUPUS ERYTHEMATOSUS
     Dosage: 20 MG;PO
     Route: 048
  2. ATORVASTATIN [Suspect]
     Indication: CORONARY ARTERY DISEASE
     Dosage: 20MG;QD
  3. ISOSORBIDE DINITRATE [Concomitant]
  4. CLOPIDOGREL [Suspect]
     Indication: CORONARY ARTERY DISEASE
  5. HYDROXYCHLOROQUINE SULFATE [Concomitant]
  6. METOPROLOL TARTRATE [Concomitant]
  7. DILTIAZEM HYDROCHLORIDE [Suspect]
     Indication: PRODUCT USED FOR UNKNOWN INDICATION
  8. HEPARIN [Concomitant]
  9. ASPIRIN [Concomitant]

REACTIONS (7)
  - DECREASED APPETITE [None]
  - ANGINA UNSTABLE [None]
  - ALANINE AMINOTRANSFERASE INCREASED [None]
  - HEPATOCELLULAR INJURY [None]
  - CORONARY ARTERY DISEASE [None]
  - FATIGUE [None]
  - DRUG INTERACTION [None]
